FAERS Safety Report 4939804-5 (Version None)
Quarter: 2006Q1

REPORT INFORMATION
  Report Type: 
  Country: None (occurrence: None)
  Receive Date: 20060307
  Receipt Date: 20060222
  Transmission Date: 20060701
  Serious: Yes (Life-Threatening, Hospitalization)
  Sender: FDA-Public Use
  Company Number: 2004105532

PATIENT
  Age: 51 Year
  Sex: Male

DRUGS (7)
  1. CARDENALIN (DOXAZOSIN) [Suspect]
     Indication: ILL-DEFINED DISORDER
     Dosage: 52 MG (DAILY), ORAL
     Route: 048
     Dates: start: 20041204
  2. NIFEDIPINE [Suspect]
     Indication: ILL-DEFINED DISORDER
     Dosage: 520 MG (DAILY), ORAL
     Route: 048
     Dates: start: 20041204
  3. IMIDAPRIL HYDROCHLORIDE (IMIDAPRIL HYDROCHLORIDE) [Suspect]
     Indication: ILL-DEFINED DISORDER
     Dosage: 120 MG (DAILY), ORAL
     Route: 048
     Dates: start: 20041204
  4. ROXATIDINE ACETATE HCL [Suspect]
     Indication: ILL-DEFINED DISORDER
     Dosage: 975 MG (DAILY), ORAL
     Route: 048
     Dates: start: 20041204
  5. ALLOPURINOL [Suspect]
     Indication: ILL-DEFINED DISORDER
     Dosage: 1200 MG (DAILY),
  6. METHYLDOPA [Suspect]
     Indication: ILL-DEFINED DISORDER
     Dosage: 13500 MG (DAILY),
  7. ANTIPSYCHOTICS (ANTIPSYCHOTICS) [Suspect]
     Indication: ILL-DEFINED DISORDER

REACTIONS (9)
  - ALCOHOL USE [None]
  - BLOOD PRESSURE SYSTOLIC INCREASED [None]
  - DRUG INEFFECTIVE [None]
  - EPILEPSY [None]
  - HEART RATE INCREASED [None]
  - HYPOTENSION [None]
  - SHOCK [None]
  - SNORING [None]
  - SUICIDE ATTEMPT [None]
